FAERS Safety Report 21093842 (Version 1)
Quarter: 2022Q3

REPORT INFORMATION
  Report Type: Spontaneous
  Country: CZ (occurrence: CZ)
  Receive Date: 20220718
  Receipt Date: 20220718
  Transmission Date: 20221027
  Serious: Yes (Other)
  Sender: FDA-Public Use
  Company Number: CZ-MYLANLABS-2022M1048871

PATIENT
  Age: 68 Year
  Sex: Male

DRUGS (18)
  1. OXALIPLATIN [Suspect]
     Active Substance: OXALIPLATIN
     Indication: Colorectal cancer metastatic
     Dosage: START DATE:OCT-2009
     Route: 065
  2. OXALIPLATIN [Suspect]
     Active Substance: OXALIPLATIN
     Dosage: WITH 6 CYCLES OF FOLFOX/ START DATE:2009
     Route: 065
     Dates: end: 200910
  3. OXALIPLATIN [Suspect]
     Active Substance: OXALIPLATIN
     Dosage: START DATE: OCT-2019 (6 CYCLES OF FOLFOX CHEMOTHERAPY)
     Route: 065
     Dates: end: 202003
  4. IRINOTECAN [Suspect]
     Active Substance: IRINOTECAN
     Indication: Colorectal cancer metastatic
     Dosage: (FOLFIRI THERAPY) (START DATE: 2011)
     Route: 065
     Dates: end: 201607
  5. IRINOTECAN [Suspect]
     Active Substance: IRINOTECAN
     Dosage: (25 CYCLES OF FOLFIRI THERAPY) START DATE: 2015
     Route: 065
  6. IRINOTECAN [Suspect]
     Active Substance: IRINOTECAN
     Dosage: (FOLFIRI THERAPY) START DATE: 2017
     Route: 065
  7. FLUOROURACIL [Suspect]
     Active Substance: FLUOROURACIL
     Indication: Colorectal cancer metastatic
     Dosage: START DATE: OCT-2009
     Route: 065
  8. FLUOROURACIL [Suspect]
     Active Substance: FLUOROURACIL
     Dosage: WITH 6 CYCLES OF FOLFOX/START DATE:2009
     Route: 065
     Dates: end: 200910
  9. FLUOROURACIL [Suspect]
     Active Substance: FLUOROURACIL
     Dosage: (START DATE: 2017)
     Route: 065
     Dates: end: 201904
  10. FLUOROURACIL [Suspect]
     Active Substance: FLUOROURACIL
     Dosage: UNK, 25 CYCLES/ START DATE: 2011
     Route: 065
     Dates: end: 201607
  11. LEUCOVORIN [Suspect]
     Active Substance: LEUCOVORIN
     Indication: Colorectal cancer metastatic
     Dosage: START DATE: OCT-2009
     Route: 065
  12. LEUCOVORIN [Suspect]
     Active Substance: LEUCOVORIN
     Dosage: UNK (START DATE: 2011), 6 CYCLES
     Route: 065
     Dates: end: 201607
  13. LEUCOVORIN [Suspect]
     Active Substance: LEUCOVORIN
     Dosage: UNK (START DATE: 2017)
     Route: 065
     Dates: end: 201904
  14. BEVACIZUMAB [Suspect]
     Active Substance: BEVACIZUMAB
     Indication: Colorectal cancer metastatic
     Dosage: UNK, 25 CYCLES/ START DATE: 2011
     Route: 042
     Dates: end: 201607
  15. LEUCOVORIN CALCIUM [Concomitant]
     Active Substance: LEUCOVORIN CALCIUM
     Indication: Colorectal cancer metastatic
     Dosage: WITH 6 CYCLES OF FOLFOX/START DATE:2009
     Route: 065
     Dates: end: 200910
  16. AFLIBERCEPT [Concomitant]
     Active Substance: AFLIBERCEPT
     Indication: Colorectal cancer metastatic
     Dosage: UNK (START DATE: 2017)
     Route: 065
     Dates: end: 201904
  17. REGORAFENIB [Concomitant]
     Active Substance: REGORAFENIB
     Dosage: APR-2020
     Route: 065
  18. TIPIRACIL HYDROCHLORIDE\TRIFLURIDINE [Concomitant]
     Active Substance: TIPIRACIL HYDROCHLORIDE\TRIFLURIDINE
     Dosage: UNK
     Route: 065

REACTIONS (5)
  - Neuropathy peripheral [Unknown]
  - Neutropenia [Unknown]
  - Diabetic metabolic decompensation [Unknown]
  - Diarrhoea [Unknown]
  - Hypertension [Unknown]

NARRATIVE: CASE EVENT DATE: 20091001
